FAERS Safety Report 11458138 (Version 1)
Quarter: 2015Q3

REPORT INFORMATION
  Report Type: Spontaneous
  Country: None (occurrence: None)
  Receive Date: 20150903
  Receipt Date: 20150903
  Transmission Date: 20151125
  Serious: Yes (Other)
  Sender: FDA-Public Use
  Company Number: None

PATIENT

DRUGS (1)
  1. CITALOPRAM [Suspect]
     Active Substance: CITALOPRAM HYDROBROMIDE
     Dosage: 2 PILLS -- --

REACTIONS (7)
  - Contusion [None]
  - Alcoholism [None]
  - Nipple pain [None]
  - Dizziness [None]
  - Feeling drunk [None]
  - Gingival bleeding [None]
  - Vertigo [None]
